FAERS Safety Report 9516545 (Version 5)
Quarter: 2014Q1

REPORT INFORMATION
  Report Type: Spontaneous
  Country: US (occurrence: US)
  Receive Date: 20130911
  Receipt Date: 20140211
  Transmission Date: 20141002
  Serious: Yes (Hospitalization, Other)
  Sender: FDA-Public Use
  Company Number: US-INCYTE CORPORATION-2013IN002035

PATIENT
  Age: 84 Year
  Sex: Male

DRUGS (24)
  1. JAKAFI [Suspect]
     Indication: MYELOFIBROSIS
     Dosage: 10 MG, BID
     Route: 048
     Dates: start: 20130807
  2. LEVOTHYROXINE [Concomitant]
  3. MINOCYCLINE [Concomitant]
  4. FUROSEMIDE [Concomitant]
  5. METOPROLOL [Concomitant]
  6. FLOMAX [Concomitant]
  7. LOPERAMIDE [Concomitant]
  8. FOLIC ACID [Concomitant]
  9. IRON [Concomitant]
  10. VITAMIN D [Concomitant]
  11. VITAMIN B6 [Concomitant]
  12. VITAMIN B12 [Concomitant]
  13. ALLOPURINOL [Concomitant]
  14. SIMVASTATIN [Concomitant]
  15. CLONAZEPAM [Concomitant]
  16. PANTOPRAZOLE SODIUM [Concomitant]
     Dosage: 40 MG, UNK
  17. AUGMENTIN [Concomitant]
     Dosage: 875-125 TAB, UNK
  18. ZOCOR [Concomitant]
     Dosage: 10 MG, UNK
  19. REQUIP [Concomitant]
  20. METOPROLOL WITH HCTZ [Concomitant]
  21. COLCRYS [Concomitant]
  22. B COMPLEX [Concomitant]
  23. HYDROXYZINE HYDROCHLORIDE [Concomitant]
     Dosage: 10 MG, UNK
  24. PROCRIT [Concomitant]

REACTIONS (14)
  - Haematemesis [Unknown]
  - Melaena [Unknown]
  - Blast cell count increased [Unknown]
  - Abdominal pain upper [Unknown]
  - Transient acantholytic dermatosis [Unknown]
  - White blood cell count increased [Unknown]
  - Pneumonia [Unknown]
  - Fatigue [Unknown]
  - Pyrexia [Unknown]
  - Asthenia [Unknown]
  - Blood count abnormal [Unknown]
  - Haemoglobin decreased [Unknown]
  - Red blood cell count decreased [Unknown]
  - Platelet count decreased [Unknown]
